FAERS Safety Report 18198224 (Version 2)
Quarter: 2021Q1

REPORT INFORMATION
  Report Type: Other
  Country: UY (occurrence: UY)
  Receive Date: 20200826
  Receipt Date: 20210112
  Transmission Date: 20210419
  Serious: Yes (Other)
  Sender: FDA-Public Use
  Company Number: UY-ROCHE-2661362

PATIENT
  Sex: Female

DRUGS (1)
  1. ATEZOLIZUMAB. [Suspect]
     Active Substance: ATEZOLIZUMAB
     Indication: PRODUCT USED FOR UNKNOWN INDICATION
     Route: 041

REACTIONS (5)
  - Headache [Unknown]
  - Positron emission tomogram abnormal [Unknown]
  - Abdominal pain upper [Unknown]
  - Haemoptysis [Unknown]
  - Lacrimation increased [Unknown]
